FAERS Safety Report 6509129-5 (Version None)
Quarter: 2009Q4

REPORT INFORMATION
  Report Type: 
  Country: None (occurrence: None)
  Receive Date: 20091221
  Receipt Date: 20091210
  Transmission Date: 20100525
  Serious: Yes (Disabling)
  Sender: FDA-Public Use
  Company Number: IT-PFIZER INC-2009308852

PATIENT

DRUGS (1)
  1. GABAPENTIN [Suspect]

REACTIONS (4)
  - DIPLOPIA [None]
  - DIZZINESS [None]
  - SOPOR [None]
  - URINARY INCONTINENCE [None]
